FAERS Safety Report 15479314 (Version 1)
Quarter: 2018Q4

REPORT INFORMATION
  Report Type: Spontaneous
  Country: DE (occurrence: DE)
  Receive Date: 20181009
  Receipt Date: 20181009
  Transmission Date: 20190205
  Serious: Yes (Life-Threatening)
  Sender: FDA-Public Use
  Company Number: DE-ASTRAZENECA-2018SF16467

PATIENT
  Sex: Female
  Weight: 61.6 kg

DRUGS (3)
  1. EZETROL [Suspect]
     Active Substance: EZETIMIBE
     Indication: HYPERLIPIDAEMIA
     Route: 048
     Dates: start: 20180601, end: 20180702
  2. COLESEVELAM [Suspect]
     Active Substance: COLESEVELAM
     Indication: HYPERLIPIDAEMIA
     Route: 048
     Dates: start: 20180601, end: 20180702
  3. ROSUVASTATIN. [Suspect]
     Active Substance: ROSUVASTATIN
     Indication: HYPERLIPIDAEMIA
     Route: 048
     Dates: start: 20180601, end: 20180702

REACTIONS (5)
  - Hypertension [Recovered/Resolved]
  - Palpitations [Recovered/Resolved]
  - Back pain [Recovered/Resolved]
  - Abdominal discomfort [Recovered/Resolved]
  - Musculoskeletal discomfort [Recovered/Resolved]
